FAERS Safety Report 4622942-4 (Version None)
Quarter: 2005Q1

REPORT INFORMATION
  Report Type: 
  Country: None (occurrence: None)
  Receive Date: 20050329
  Receipt Date: 20030822
  Transmission Date: 20050727
  Serious: Yes (Death)
  Sender: FDA-Public Use
  Company Number: 5788

PATIENT
  Sex: Female

DRUGS (2)
  1. FLUPHENAZINE [Suspect]
     Indication: PSYCHOTIC DISORDER
     Dosage: 100 MG FORTNIGHTLY
     Dates: start: 19950101
  2. CHLORPROMAZINE [Suspect]
     Dosage: 200 MG
     Dates: start: 19950101

REACTIONS (3)
  - DRUG LEVEL INCREASED [None]
  - DRUG TOXICITY [None]
  - SUDDEN DEATH [None]
